FAERS Safety Report 13769429 (Version 1)
Quarter: 2017Q3

REPORT INFORMATION
  Report Type: Spontaneous
  Country: US (occurrence: US)
  Receive Date: 20170719
  Receipt Date: 20170719
  Transmission Date: 20171127
  Serious: Yes (Hospitalization, Other)
  Sender: FDA-Public Use
  Company Number: US-SUNOVION-2017SUN001072

PATIENT
  Age: 59 Year
  Sex: Female
  Weight: 113.5 kg

DRUGS (14)
  1. IMDUR [Concomitant]
     Active Substance: ISOSORBIDE MONONITRATE
  2. LISINOPRIL. [Concomitant]
     Active Substance: LISINOPRIL
  3. METOPROLOL. [Concomitant]
     Active Substance: METOPROLOL
  4. DILANTIN [Concomitant]
     Active Substance: PHENYTOIN
     Dosage: 300 MG, HS
  5. AMLODIPINE [Concomitant]
     Active Substance: AMLODIPINE BESYLATE
  6. APTIOM [Suspect]
     Active Substance: ESLICARBAZEPINE ACETATE
     Dosage: 400 MG, UNK
     Route: 048
     Dates: start: 20161025
  7. GLIPIZIDE. [Concomitant]
     Active Substance: GLIPIZIDE
  8. NAPROXEN. [Concomitant]
     Active Substance: NAPROXEN
  9. GABAPENTIN. [Concomitant]
     Active Substance: GABAPENTIN
  10. FE [Concomitant]
     Active Substance: IRON
  11. SYNTHROID [Concomitant]
     Active Substance: LEVOTHYROXINE SODIUM
  12. APTIOM [Suspect]
     Active Substance: ESLICARBAZEPINE ACETATE
     Dosage: 800 MG, UNK
     Route: 048
     Dates: start: 201612
  13. HCTZ [Concomitant]
     Active Substance: HYDROCHLOROTHIAZIDE
  14. INSULIN [Concomitant]
     Active Substance: INSULIN NOS

REACTIONS (2)
  - Hyponatraemia [Recovered/Resolved with Sequelae]
  - Blood glucose increased [Unknown]

NARRATIVE: CASE EVENT DATE: 201612
